FAERS Safety Report 19820095 (Version 1)
Quarter: 2021Q3

REPORT INFORMATION
  Report Type: Spontaneous
  Country: US (occurrence: US)
  Receive Date: 20210913
  Receipt Date: 20210913
  Transmission Date: 20211014
  Serious: No
  Sender: FDA-Public Use
  Company Number: US-AMGEN-USASP2021139809

PATIENT
  Age: 70 Year
  Sex: Female

DRUGS (14)
  1. CEPHALEXINE [Concomitant]
     Active Substance: CEPHALEXIN
  2. PRAMIPEXOLE. [Concomitant]
     Active Substance: PRAMIPEXOLE
  3. VIRTUSSIN AC [Concomitant]
     Active Substance: CODEINE PHOSPHATE\GUAIFENESIN
  4. BENZONATATE. [Concomitant]
     Active Substance: BENZONATATE
  5. FENOFIBRATE. [Concomitant]
     Active Substance: FENOFIBRATE
  6. LEVOTHYROXIN [Concomitant]
     Active Substance: LEVOTHYROXINE
  7. TRAZODONE [Concomitant]
     Active Substance: TRAZODONE HYDROCHLORIDE
  8. ONDANSETRON ODT [Concomitant]
     Active Substance: ONDANSETRON
  9. PREGABALIN. [Concomitant]
     Active Substance: PREGABALIN
  10. ATORVASTATIN [Concomitant]
     Active Substance: ATORVASTATIN
  11. CLOPIDOGREL [Concomitant]
     Active Substance: CLOPIDOGREL BISULFATE
  12. OTEZLA [Suspect]
     Active Substance: APREMILAST
     Indication: PSORIASIS
     Dosage: 30 MILLIGRAM, BID
     Route: 048
     Dates: start: 20200519
  13. SOLIFENACIN [Concomitant]
     Active Substance: SOLIFENACIN
  14. DONEPEZIL. [Concomitant]
     Active Substance: DONEPEZIL

REACTIONS (2)
  - Product dose omission issue [Not Recovered/Not Resolved]
  - Psoriasis [Not Recovered/Not Resolved]
